FAERS Safety Report 11839126 (Version 1)
Quarter: 2015Q4

REPORT INFORMATION
  Report Type: Report from Study
  Country: CA (occurrence: CA)
  Receive Date: 20151216
  Receipt Date: 20151216
  Transmission Date: 20160305
  Serious: Yes (Other)
  Sender: FDA-Public Use
  Company Number: CA-ROCHE-1677727

PATIENT
  Sex: Male

DRUGS (15)
  1. ACTEMRA [Suspect]
     Active Substance: TOCILIZUMAB
     Route: 042
     Dates: start: 20151009
  2. DUTASTERIDE. [Concomitant]
     Active Substance: DUTASTERIDE
  3. ASA EC [Concomitant]
  4. HYDROXYQUINOLINE [Concomitant]
  5. ISONIAZID. [Concomitant]
     Active Substance: ISONIAZID
  6. BETAHISTINE [Concomitant]
     Active Substance: BETAHISTINE
  7. ACTEMRA [Suspect]
     Active Substance: TOCILIZUMAB
     Route: 042
     Dates: start: 20141229
  8. INDAPAMIDE. [Concomitant]
     Active Substance: INDAPAMIDE
  9. MAVIK [Concomitant]
     Active Substance: TRANDOLAPRIL
  10. ACTEMRA [Suspect]
     Active Substance: TOCILIZUMAB
     Indication: RHEUMATOID ARTHRITIS
     Route: 042
     Dates: start: 20141205
  11. AMITRIPTYLINE [Concomitant]
     Active Substance: AMITRIPTYLINE
  12. METHOTREXATE [Concomitant]
     Active Substance: METHOTREXATE
  13. EURO-FOLIC [Concomitant]
  14. VITAMIN B6 [Concomitant]
     Active Substance: PYRIDOXINE HYDROCHLORIDE
  15. DILTIAZEM HYDROCHLORIDE EXTENDED RELEASE [Concomitant]
     Active Substance: DILTIAZEM HYDROCHLORIDE

REACTIONS (1)
  - Gastrointestinal carcinoma [Not Recovered/Not Resolved]
